FAERS Safety Report 6156179-7 (Version None)
Quarter: 2009Q2

REPORT INFORMATION
  Report Type: 
  Country: None (occurrence: None)
  Receive Date: 20090415
  Receipt Date: 20090407
  Transmission Date: 20091009
  Serious: Yes (Death, Life-Threatening, Hospitalization)
  Sender: FDA-Public Use
  Company Number: DE-WYE-G02543008

PATIENT
  Sex: Female
  Weight: 53 kg

DRUGS (9)
  1. TYGACIL [Suspect]
     Indication: PERITONITIS
     Route: 042
     Dates: start: 20080406, end: 20080415
  2. TYGACIL [Suspect]
     Route: 042
     Dates: start: 20080406, end: 20080406
  3. SIMVASTATIN [Concomitant]
  4. ROCEPHIN [Concomitant]
     Indication: PERITONITIS
     Route: 042
     Dates: start: 20080419, end: 20080423
  5. CIPROFLOXACIN [Concomitant]
     Dosage: UNKNOWN
     Dates: start: 20080409
  6. CEFUROXIME [Concomitant]
     Indication: PERITONITIS
     Route: 042
     Dates: start: 20080406, end: 20080406
  7. METRONIDAZOLE HCL [Concomitant]
     Indication: PERITONITIS
     Route: 042
     Dates: start: 20080406, end: 20080406
  8. NEXIUM [Concomitant]
     Dosage: UNKNOWN
  9. ANTI-PHOSPHAT [Concomitant]
     Dosage: UNKNOWN

REACTIONS (12)
  - BLOOD BILIRUBIN INCREASED [None]
  - CHOLECYSTITIS [None]
  - CONDITION AGGRAVATED [None]
  - ENTEROBACTER PNEUMONIA [None]
  - HEPATIC ENZYME INCREASED [None]
  - HEPATORENAL SYNDROME [None]
  - MULTI-ORGAN FAILURE [None]
  - MYOCARDIAL INFARCTION [None]
  - RENAL FAILURE [None]
  - SEPSIS [None]
  - TACHYARRHYTHMIA [None]
  - THROMBOCYTOPENIA [None]
